FAERS Safety Report 22161158 (Version 1)
Quarter: 2023Q1

REPORT INFORMATION
  Report Type: Spontaneous
  Country: US (occurrence: US)
  Receive Date: 20230331
  Receipt Date: 20230331
  Transmission Date: 20230417
  Serious: No
  Sender: FDA-Public Use
  Company Number: US-drreddys-SPO/USA/23/0161159

PATIENT
  Sex: Female

DRUGS (2)
  1. GUAIFENESIN AND PSEUDOEPHEDRINE HYDROCHLORIDE [Suspect]
     Active Substance: GUAIFENESIN\PSEUDOEPHEDRINE HYDROCHLORIDE
     Indication: Nasopharyngitis
  2. GUAIFENESIN AND PSEUDOEPHEDRINE HYDROCHLORIDE [Suspect]
     Active Substance: GUAIFENESIN\PSEUDOEPHEDRINE HYDROCHLORIDE
     Indication: Rhinorrhoea

REACTIONS (1)
  - Lip dry [Unknown]
